FAERS Safety Report 14557931 (Version 2)
Quarter: 2018Q2

REPORT INFORMATION
  Report Type: Spontaneous
  Country: US (occurrence: US)
  Receive Date: 20180221
  Receipt Date: 20180422
  Transmission Date: 20180711
  Serious: Yes (Hospitalization, Other)
  Sender: FDA-Public Use
  Company Number: US-APOTEX-2018AP007189

PATIENT
  Age: 41 Year
  Sex: Female
  Weight: 79 kg

DRUGS (4)
  1. CEFEPIME [Suspect]
     Active Substance: CEFEPIME HYDROCHLORIDE
     Indication: PNEUMOCOCCAL SEPSIS
     Dosage: 2 G, ONCE EVERY EIGHT HOURS
     Route: 042
  2. DAPTOMYCIN. [Suspect]
     Active Substance: DAPTOMYCIN
     Indication: PNEUMOCOCCAL SEPSIS
     Dosage: 6 MG/KG, EVERY 48 HOURS
     Route: 042
  3. CIPROFLOXACIN. [Suspect]
     Active Substance: CIPROFLOXACIN
     Indication: LUNG INFILTRATION
     Dosage: 400 MG, Q.12H
     Route: 042
  4. METRONIDAZOLE. [Suspect]
     Active Substance: METRONIDAZOLE
     Indication: PNEUMOCOCCAL SEPSIS
     Dosage: 500 MG, EVERY EIGHT HOURS
     Route: 042

REACTIONS (1)
  - Drug effect incomplete [Unknown]
